FAERS Safety Report 4609293-9 (Version None)
Quarter: 2005Q1

REPORT INFORMATION
  Report Type: 
  Country: None (occurrence: None)
  Receive Date: 20050315
  Receipt Date: 20050222
  Transmission Date: 20050727
  Serious: Yes (Hospitalization)
  Sender: FDA-Public Use
  Company Number: US-MERCK-0502USA02699

PATIENT
  Age: 62 Year
  Sex: Male

DRUGS (1)
  1. VIOXX [Suspect]
     Indication: ARTHRITIS
     Route: 048
     Dates: start: 20020101, end: 20040901

REACTIONS (6)
  - ABSCESS [None]
  - CALCULUS URETERIC [None]
  - PHLEBOLITH [None]
  - PYELONEPHRITIS CHRONIC [None]
  - RENAL FAILURE [None]
  - WOUND INFECTION [None]
